FAERS Safety Report 17088292 (Version 1)
Quarter: 2019Q4

REPORT INFORMATION
  Report Type: Spontaneous
  Country: US (occurrence: US)
  Receive Date: 20191128
  Receipt Date: 20191128
  Transmission Date: 20200122
  Serious: Yes (Hospitalization, Other)
  Sender: FDA-Public Use
  Company Number: US-SA-2019SA329307

PATIENT
  Age: 76 Year
  Sex: Female

DRUGS (8)
  1. SINEMET [Concomitant]
     Active Substance: CARBIDOPA\LEVODOPA
  2. PLAVIX [Suspect]
     Active Substance: CLOPIDOGREL BISULFATE
     Dosage: UNK UNK, UNK
     Route: 065
  3. GOCOVRI [Suspect]
     Active Substance: AMANTADINE
     Dosage: 137 MG, HS, 1X PER DAY AT BED TIME
     Route: 048
     Dates: start: 20160329, end: 201905
  4. AMLODIPINE [Concomitant]
     Active Substance: AMLODIPINE BESYLATE
  5. ATENOL [Concomitant]
     Active Substance: ATENOLOL
  6. GOCOVRI [Suspect]
     Active Substance: AMANTADINE
     Indication: DYSKINESIA
     Dosage: 137 MG, HS, 1X PER DAY AT BED TIME
     Route: 048
     Dates: start: 20190316, end: 20190322
  7. GOCOVRI [Suspect]
     Active Substance: AMANTADINE
     Dosage: 274 MG, HS, 1X PER DAY AT BED TIME
     Route: 048
     Dates: start: 20190323, end: 20190327
  8. GOCOVRI [Suspect]
     Active Substance: AMANTADINE
     Dosage: 137 MG, HS, 1X PER DAY AT BED TIME
     Route: 048
     Dates: start: 2019

REACTIONS (15)
  - Transfusion [Unknown]
  - Femur fracture [Unknown]
  - Pulmonary oedema [Unknown]
  - Anaesthetic complication [Unknown]
  - Unevaluable event [Unknown]
  - Internal fixation of fracture [Unknown]
  - Bedridden [Not Recovered/Not Resolved]
  - Product dose omission [Unknown]
  - Fall [Not Recovered/Not Resolved]
  - Balance disorder [Not Recovered/Not Resolved]
  - Heart rate abnormal [Unknown]
  - Haemoglobin decreased [Unknown]
  - Renal disorder [Unknown]
  - Infection [Unknown]
  - Hallucination [Unknown]

NARRATIVE: CASE EVENT DATE: 2019
